FAERS Safety Report 6694071-X (Version None)
Quarter: 2010Q2

REPORT INFORMATION
  Report Type: 
  Country: None (occurrence: None)
  Receive Date: 20100423
  Receipt Date: 20100409
  Transmission Date: 20101027
  Serious: Yes (Disabling, Other)
  Sender: FDA-Public Use
  Company Number: US-ELI_LILLY_AND_COMPANY-US201002001520

PATIENT
  Sex: Female

DRUGS (3)
  1. FORTEO [Suspect]
     Indication: OSTEOPOROSIS
     Dosage: 20 UG, DAILY (1/D)
     Route: 065
     Dates: start: 20090901
  2. RAMIPRIL [Concomitant]
  3. TOPROL-XL [Concomitant]
     Dosage: UNK, DAILY (1/D)
     Route: 065

REACTIONS (3)
  - FALL [None]
  - FRACTURED SACRUM [None]
  - PAIN [None]
